FAERS Safety Report 12896240 (Version 1)
Quarter: 2016Q4

REPORT INFORMATION
  Report Type: Spontaneous
  Country: US (occurrence: US)
  Receive Date: 20161031
  Receipt Date: 20161031
  Transmission Date: 20170207
  Serious: No
  Sender: FDA-Public Use
  Company Number: US-JAZZ-2016-US-016171

PATIENT
  Sex: Male

DRUGS (37)
  1. METOPROLOL SUCCINATE. [Concomitant]
     Active Substance: METOPROLOL SUCCINATE
  2. NIFEDIPINE. [Concomitant]
     Active Substance: NIFEDIPINE
  3. COLCRYS [Concomitant]
     Active Substance: COLCHICINE
  4. FISH OIL 1-A-DAY + VITAMIN D3 [Concomitant]
  5. GLUCOSAMINE AND CHONDROITIN [Concomitant]
     Active Substance: CHONDROITIN SULFATE (BOVINE)\GLUCOSAMINE HYDROCHLORIDE
  6. KETOCONAZOLE. [Concomitant]
     Active Substance: KETOCONAZOLE
  7. MAXZIDE [Concomitant]
     Active Substance: HYDROCHLOROTHIAZIDE\TRIAMTERENE
  8. RAPAFLO [Concomitant]
     Active Substance: SILODOSIN
  9. DEPAKOTE [Concomitant]
     Active Substance: DIVALPROEX SODIUM
  10. MUSE [Concomitant]
     Active Substance: ALPROSTADIL
  11. VITAMIN D3 [Concomitant]
     Active Substance: CHOLECALCIFEROL
  12. VOLTAREN [Concomitant]
     Active Substance: DICLOFENAC SODIUM
  13. XYREM [Suspect]
     Active Substance: SODIUM OXYBATE
     Indication: NARCOLEPSY
     Dosage: 2.25 G, BID
     Route: 048
     Dates: start: 200212, end: 2004
  14. XYREM [Suspect]
     Active Substance: SODIUM OXYBATE
     Dosage: 4.5 G, BID
     Route: 048
     Dates: start: 201309
  15. ALLEGRA ALLERGY [Concomitant]
     Active Substance: FEXOFENADINE HYDROCHLORIDE
  16. ENABLEX [Concomitant]
     Active Substance: DARIFENACIN HYDROBROMIDE
  17. MODAFINIL. [Concomitant]
     Active Substance: MODAFINIL
  18. VITAMIN C [Concomitant]
     Active Substance: ASCORBIC ACID
  19. ZETIA [Concomitant]
     Active Substance: EZETIMIBE
  20. CULTURELLE [Concomitant]
     Active Substance: LACTOBACILLUS RHAMNOSUS
  21. ASPIRIN. [Concomitant]
     Active Substance: ASPIRIN
  22. CIALIS [Concomitant]
     Active Substance: TADALAFIL
  23. XYREM [Suspect]
     Active Substance: SODIUM OXYBATE
     Dosage: DOSE ADJUSTMENTS
     Route: 048
     Dates: start: 201309, end: 201309
  24. FERROUS SULFATE. [Concomitant]
     Active Substance: FERROUS SULFATE
  25. VITAMIN B12 [Concomitant]
     Active Substance: CYANOCOBALAMIN
  26. XYREM [Suspect]
     Active Substance: SODIUM OXYBATE
     Dosage: 2.25 G, BID
     Route: 048
     Dates: start: 201308, end: 201309
  27. OCUVITE [Concomitant]
     Active Substance: VITAMINS
  28. LISINOPRIL. [Concomitant]
     Active Substance: LISINOPRIL
  29. DOXYCYCLINE HYCLATE. [Concomitant]
     Active Substance: DOXYCYCLINE HYCLATE
  30. BUPROPION HCL [Concomitant]
     Active Substance: BUPROPION HYDROCHLORIDE
  31. BYSTOLIC [Concomitant]
     Active Substance: NEBIVOLOL HYDROCHLORIDE
  32. CICLOPIROX. [Concomitant]
     Active Substance: CICLOPIROX
  33. FLONASE [Concomitant]
     Active Substance: FLUTICASONE PROPIONATE
  34. LIPITOR [Concomitant]
     Active Substance: ATORVASTATIN CALCIUM
  35. NEXIUM [Concomitant]
     Active Substance: ESOMEPRAZOLE MAGNESIUM
  36. VERAPAMIL [Concomitant]
     Active Substance: VERAPAMIL HYDROCHLORIDE
  37. ALLOPURINOL. [Concomitant]
     Active Substance: ALLOPURINOL

REACTIONS (2)
  - Benign prostatic hyperplasia [Unknown]
  - Tremor [Unknown]
